FAERS Safety Report 18753696 (Version 2)
Quarter: 2021Q1

REPORT INFORMATION
  Report Type: Report from Study
  Country: CA (occurrence: CA)
  Receive Date: 20210118
  Receipt Date: 20210212
  Transmission Date: 20210419
  Serious: Yes (Other)
  Sender: FDA-Public Use
  Company Number: CA-009507513-2101CAN007784

PATIENT
  Age: 75 Year
  Sex: Female

DRUGS (5)
  1. AMLODIPINE [Suspect]
     Active Substance: AMLODIPINE BESYLATE
     Indication: HYPERTENSION
     Dosage: 5 MILLIGRAM; PRIOR TO STARTING LENVIMA
     Route: 048
  2. LENVATINIB MESYLATE [Suspect]
     Active Substance: LENVATINIB MESYLATE
     Indication: ENDOMETRIAL CANCER
     Dosage: 18 MILLIGRAM, QD
     Route: 048
     Dates: start: 20201023
  3. AMLODIPINE [Suspect]
     Active Substance: AMLODIPINE BESYLATE
     Dosage: 10 MILLIGRAM, QD; AFTER STARTING LENVIMA
     Route: 048
  4. KEYTRUDA [Suspect]
     Active Substance: PEMBROLIZUMAB
     Dosage: UNK
  5. GABAPENTIN. [Suspect]
     Active Substance: GABAPENTIN
     Indication: NEUROPATHY PERIPHERAL
     Dosage: UNKNOWN, PRN
     Route: 048

REACTIONS (23)
  - Peripheral swelling [Unknown]
  - Neuropathy peripheral [Unknown]
  - Balance disorder [Unknown]
  - Blood pressure fluctuation [Unknown]
  - Eating disorder [Not Recovered/Not Resolved]
  - Ageusia [Recovering/Resolving]
  - Somnolence [Unknown]
  - Joint swelling [Unknown]
  - Fatigue [Unknown]
  - Hypotension [Unknown]
  - Claustrophobia [Unknown]
  - Renal cancer [Unknown]
  - Feeling abnormal [Unknown]
  - Malaise [Unknown]
  - Hypertension [Unknown]
  - Weight decreased [Not Recovered/Not Resolved]
  - Renal impairment [Unknown]
  - Diarrhoea [Unknown]
  - Anxiety [Unknown]
  - Blood urine present [Unknown]
  - Skin tightness [Unknown]
  - Rash papular [Recovering/Resolving]
  - Asthenia [Unknown]

NARRATIVE: CASE EVENT DATE: 20200111
